FAERS Safety Report 5605945-2 (Version None)
Quarter: 2008Q1

REPORT INFORMATION
  Report Type: 
  Country: None (occurrence: None)
  Receive Date: 20080129
  Receipt Date: 20080117
  Transmission Date: 20080703
  Serious: Yes (Other)
  Sender: FDA-Public Use
  Company Number: US-ASTRAZENECA-2007UW24434

PATIENT
  Age: 555 Month
  Sex: Female
  Weight: 134.1 kg

DRUGS (4)
  1. SEROQUEL [Suspect]
     Indication: ANXIETY
     Dosage: 25 MG, 50 MG, 100 MG
     Route: 048
     Dates: start: 20031001
  2. TEGGERTOL [Concomitant]
     Route: 048
     Dates: start: 20010101
  3. EFFEXOR [Concomitant]
     Route: 048
     Dates: start: 20000101
  4. CHROMIUM PICOLINATE [Concomitant]
     Route: 048

REACTIONS (3)
  - BLOOD CHOLESTEROL INCREASED [None]
  - DIABETES MELLITUS [None]
  - NEUROPATHY PERIPHERAL [None]
